FAERS Safety Report 6043636-7 (Version None)
Quarter: 2009Q1

REPORT INFORMATION
  Report Type: 
  Country: None (occurrence: None)
  Receive Date: 20090120
  Receipt Date: 20080624
  Transmission Date: 20090719
  Serious: No
  Sender: FDA-Public Use
  Company Number: US-ABBOTT-08P-163-0459561-00

PATIENT
  Sex: Female
  Weight: 52.21 kg

DRUGS (7)
  1. PROSOM [Suspect]
     Indication: INSOMNIA
     Route: 048
     Dates: start: 19980101
  2. CHOLESTYRAMINE [Concomitant]
     Indication: BLOOD CHOLESTEROL
     Dosage: 1 PACKET DAILY
     Route: 048
  3. AMLODIPINE [Concomitant]
     Indication: BLOOD PRESSURE
     Route: 048
  4. METOPROLOL SUCCINATE [Concomitant]
     Indication: BLOOD PRESSURE
     Route: 048
  5. MAXZIDE [Concomitant]
     Indication: BLOOD PRESSURE
     Dosage: 50/75 MILLIGRAM 1/2 TABLET DAILY
     Route: 048
  6. CALCIUM [Concomitant]
     Indication: OSTEOPOROSIS
     Route: 048
  7. ASPIRIN [Concomitant]
     Indication: CARDIOVASCULAR EVENT PROPHYLAXIS
     Route: 048

REACTIONS (2)
  - FEELING ABNORMAL [None]
  - INSOMNIA [None]
